FAERS Safety Report 5010030-7 (Version None)
Quarter: 2006Q2

REPORT INFORMATION
  Report Type: 
  Country: None (occurrence: None)
  Receive Date: 20060404
  Receipt Date: 20060126
  Transmission Date: 20061013
  Serious: No
  Sender: FDA-Public Use
  Company Number: US200511000594

PATIENT
  Age: 69 Year
  Sex: Female

DRUGS (5)
  1. CYMBALTA [Suspect]
     Indication: DEPRESSION
     Dosage: 60 MG
     Dates: end: 20051113
  2. GLYBURIDE [Concomitant]
  3. AVANDIA [Concomitant]
  4. NORVASC [Concomitant]
  5. PRAVACHOL [Concomitant]

REACTIONS (3)
  - CHAPPED LIPS [None]
  - GLOSSITIS [None]
  - TONGUE HAEMORRHAGE [None]
